FAERS Safety Report 8445749-9 (Version None)
Quarter: 2012Q2

REPORT INFORMATION
  Report Type: 
  Country: None (occurrence: None)
  Receive Date: 20120618
  Receipt Date: 20120606
  Transmission Date: 20120825
  Serious: Yes (Hospitalization)
  Sender: FDA-Public Use
  Company Number: JP-GLAXOSMITHKLINE-B0807375A

PATIENT
  Sex: Female

DRUGS (4)
  1. LITHIUM CARBONATE [Concomitant]
     Route: 048
  2. DEPAKENE [Concomitant]
     Route: 048
  3. LAMICTAL [Suspect]
     Indication: BIPOLAR DISORDER
     Dosage: 25MG PER DAY
     Route: 048
     Dates: start: 20120501, end: 20120501
  4. AKINETON [Concomitant]
     Route: 048

REACTIONS (4)
  - HYPERNATRAEMIA [None]
  - HEPATIC FUNCTION ABNORMAL [None]
  - RASH [None]
  - RENAL IMPAIRMENT [None]
